FAERS Safety Report 19680016 (Version 2)
Quarter: 2021Q3

REPORT INFORMATION
  Report Type: Spontaneous
  Country: FR (occurrence: FR)
  Receive Date: 20210809
  Receipt Date: 20210828
  Transmission Date: 20211014
  Serious: Yes (Other)
  Sender: FDA-Public Use
  Company Number: NVSC2021FR177437

PATIENT
  Age: 59 Year
  Sex: Female
  Weight: 43 kg

DRUGS (27)
  1. TACROLIMUS. [Suspect]
     Active Substance: TACROLIMUS
     Dosage: 2.5 MG, QD
     Route: 048
     Dates: start: 20171030
  2. CORTANCYL [Concomitant]
     Active Substance: PREDNISONE
     Dosage: UNK(40 UNITS NOT REPORTED, TOTAL DAILY DOSE)
     Route: 065
     Dates: start: 20180318, end: 20180322
  3. CORTANCYL [Concomitant]
     Active Substance: PREDNISONE
     Dosage: UNK(10 UNITS NOT REPORTED, TOTAL DAILY DOSE)
     Route: 065
     Dates: start: 20180329, end: 20180403
  4. CORTANCYL [Concomitant]
     Active Substance: PREDNISONE
     Dosage: UNK(5 UNITS NOT REPORTED, TOTAL DAILY DOSE)
     Route: 065
     Dates: start: 20180404, end: 20180417
  5. TACROLIMUS. [Suspect]
     Active Substance: TACROLIMUS
     Dosage: 3 MG, QD
     Route: 048
     Dates: start: 20171123
  6. TACROLIMUS. [Suspect]
     Active Substance: TACROLIMUS
     Dosage: 4 MG, QD
     Route: 048
     Dates: start: 20181213
  7. TACROLIMUS. [Suspect]
     Active Substance: TACROLIMUS
     Dosage: 3 MG,QD
     Route: 048
     Dates: start: 20210603
  8. TACROLIMUS. [Suspect]
     Active Substance: TACROLIMUS
     Indication: IMMUNOSUPPRESSION
     Dosage: 5 MG, QD
     Route: 048
     Dates: start: 20170429
  9. TACROLIMUS. [Suspect]
     Active Substance: TACROLIMUS
     Dosage: 3 MG, QD
     Route: 048
     Dates: start: 20171025
  10. TACROLIMUS. [Suspect]
     Active Substance: TACROLIMUS
     Dosage: 4 MG, QD
     Route: 048
     Dates: start: 20180117
  11. TACROLIMUS. [Suspect]
     Active Substance: TACROLIMUS
     Dosage: 5 MG, QD
     Route: 048
     Dates: start: 20180621
  12. TACROLIMUS. [Suspect]
     Active Substance: TACROLIMUS
     Dosage: 3.5 MG, QD
     Route: 048
     Dates: start: 20201022
  13. CORTANCYL [Concomitant]
     Active Substance: PREDNISONE
     Dosage: UNK(5 UNITS NOT REPORTED, TOTAL DAILY DOSE)
     Route: 065
     Dates: start: 20180712
  14. TACROLIMUS. [Suspect]
     Active Substance: TACROLIMUS
     Dosage: 5 MG, QD
     Route: 048
     Dates: start: 20170902
  15. TACROLIMUS. [Suspect]
     Active Substance: TACROLIMUS
     Dosage: 2 MG, QD
     Route: 048
     Dates: start: 20171103
  16. TACROLIMUS. [Suspect]
     Active Substance: TACROLIMUS
     Dosage: 3.5 MG, QD
     Route: 048
     Dates: start: 20171208
  17. CORTANCYL [Concomitant]
     Active Substance: PREDNISONE
     Dosage: UNK(10 UNITS NOT REPORTED, TOTAL DAILY DOSE)
     Route: 065
     Dates: start: 20180418, end: 20180711
  18. TACROLIMUS. [Suspect]
     Active Substance: TACROLIMUS
     Dosage: 5.5 MG, QD
     Route: 048
     Dates: start: 20170830
  19. TACROLIMUS. [Suspect]
     Active Substance: TACROLIMUS
     Dosage: 4.5 MG, QD
     Route: 048
     Dates: start: 20180831
  20. TACROLIMUS. [Suspect]
     Active Substance: TACROLIMUS
     Dosage: 7 MG, QD
     Route: 048
     Dates: start: 20170706
  21. TACROLIMUS. [Suspect]
     Active Substance: TACROLIMUS
     Dosage: 6.5 MG, QD
     Route: 048
     Dates: start: 20170719
  22. TACROLIMUS. [Suspect]
     Active Substance: TACROLIMUS
     Dosage: 4.5 MG, QD
     Route: 048
     Dates: start: 20170523
  23. TACROLIMUS. [Suspect]
     Active Substance: TACROLIMUS
     Dosage: 6 MG, QD
     Route: 048
     Dates: start: 20170523
  24. TACROLIMUS. [Suspect]
     Active Substance: TACROLIMUS
     Dosage: 3 MG, QD
     Route: 048
     Dates: start: 20191017
  25. IMUREL [Concomitant]
     Active Substance: AZATHIOPRINE SODIUM
     Indication: IMMUNOSUPPRESSANT DRUG THERAPY
     Dosage: UNK(100 UNITS NOT REPORTED, TOTAL DAILY DOSE)
     Route: 065
     Dates: start: 20180720, end: 20190410
  26. CORTANCYL [Concomitant]
     Active Substance: PREDNISONE
     Indication: IMMUNOSUPPRESSANT DRUG THERAPY
     Dosage: UNK(5 UNITS NOT REPORTED, TOTAL DAILY DOSE)
     Route: 065
     Dates: start: 20170422, end: 20180314
  27. CORTANCYL [Concomitant]
     Active Substance: PREDNISONE
     Dosage: UNK(20 UNITS NOT REPORTED, TOTAL DAILY DOSE)
     Route: 065
     Dates: start: 20180323, end: 20180328

REACTIONS (2)
  - Squamous cell carcinoma [Recovered/Resolved]
  - Squamous cell carcinoma [Recovered/Resolved]

NARRATIVE: CASE EVENT DATE: 201810
